FAERS Safety Report 5397835-8 (Version None)
Quarter: 2007Q3

REPORT INFORMATION
  Report Type: 
  Country: None (occurrence: None)
  Receive Date: 20070724
  Receipt Date: 20070709
  Transmission Date: 20080115
  Serious: Yes (Death, Other)
  Sender: FDA-Public Use
  Company Number: MPS1-10711

PATIENT
  Age: 9 Year
  Sex: Female
  Weight: 22.6 kg

DRUGS (6)
  1. ALDURAZYME [Suspect]
     Indication: MUCOPOLYSACCHARIDOSIS I
     Dosage: 11.6 MG QWK IV
     Route: 042
     Dates: start: 20030627, end: 20070617
  2. CIPRODEX [Concomitant]
  3. FLOXIN [Concomitant]
  4. BACTROBAN [Concomitant]
  5. SILVADENE [Concomitant]
  6. CHILDREN'S MOTRIN [Concomitant]

REACTIONS (6)
  - CARDIAC ARREST [None]
  - DRUG INTERACTION [None]
  - EAR INFECTION STAPHYLOCOCCAL [None]
  - IRRITABILITY [None]
  - MUSCULAR WEAKNESS [None]
  - STAPHYLOCOCCAL SKIN INFECTION [None]
